FAERS Safety Report 16277012 (Version 1)
Quarter: 2019Q2

REPORT INFORMATION
  Report Type: Spontaneous
  Country: CN (occurrence: CN)
  Receive Date: 20190506
  Receipt Date: 20190506
  Transmission Date: 20190711
  Serious: Yes (Hospitalization)
  Sender: FDA-Public Use
  Company Number: CN-PFIZER INC-2019186190

PATIENT
  Age: 14 Year
  Sex: Male

DRUGS (1)
  1. MEDROL [Suspect]
     Active Substance: METHYLPREDNISOLONE
     Indication: IMMUNE THROMBOCYTOPENIC PURPURA
     Dosage: 20 MG, 1X/DAY
     Route: 048
     Dates: start: 20190115, end: 20190222

REACTIONS (1)
  - Skin striae [Recovering/Resolving]

NARRATIVE: CASE EVENT DATE: 20190223
